FAERS Safety Report 12167381 (Version 4)
Quarter: 2016Q2

REPORT INFORMATION
  Report Type: Spontaneous
  Country: US (occurrence: US)
  Receive Date: 20160310
  Receipt Date: 20160610
  Transmission Date: 20160815
  Serious: No
  Sender: FDA-Public Use
  Company Number: US-PFIZER INC-2016085127

PATIENT
  Age: 56 Year
  Sex: Female
  Weight: 52.16 kg

DRUGS (3)
  1. LISINOPRIL. [Concomitant]
     Active Substance: LISINOPRIL
     Indication: CARDIAC DISORDER
     Dosage: 2.5MG TABLET ONE A DAY
     Route: 048
     Dates: start: 201101
  2. TIKOSYN [Suspect]
     Active Substance: DOFETILIDE
     Dosage: TAKES THE 375MCG DURING THE DAY, ONE 250 AND ONE 125 IN THE MORNING,  AT NIGHT SHE TAKE 250MCG
  3. TIKOSYN [Suspect]
     Active Substance: DOFETILIDE
     Indication: VENTRICULAR TACHYCARDIA
     Dosage: 250MCG ONCE IN THE MORNING AND ONCE AT NIGHT
     Dates: start: 201501

REACTIONS (2)
  - Middle insomnia [Not Recovered/Not Resolved]
  - Cardiac disorder [Unknown]

NARRATIVE: CASE EVENT DATE: 201512
